FAERS Safety Report 5371102-0 (Version None)
Quarter: 2007Q2

REPORT INFORMATION
  Report Type: 
  Country: None (occurrence: None)
  Receive Date: 20070614
  Receipt Date: 20070302
  Transmission Date: 20071010
  Serious: No
  Sender: FDA-Public Use
  Company Number: BDI-009205

PATIENT
  Age: 53 Year
  Sex: Male

DRUGS (2)
  1. MULTIHANCE [Suspect]
     Indication: BACK PAIN
     Dosage: 16 ML ONCE IV
     Route: 042
     Dates: start: 20070302, end: 20070302
  2. MULTIHANCE [Suspect]
     Indication: NUCLEAR MAGNETIC RESONANCE IMAGING
     Dosage: 16 ML ONCE IV
     Route: 042
     Dates: start: 20070302, end: 20070302

REACTIONS (2)
  - PRURITUS [None]
  - URTICARIA [None]
